FAERS Safety Report 8418712-1 (Version None)
Quarter: 2012Q2

REPORT INFORMATION
  Report Type: 
  Country: None (occurrence: None)
  Receive Date: 20120607
  Receipt Date: 20120605
  Transmission Date: 20120825
  Serious: Yes (Hospitalization)
  Sender: FDA-Public Use
  Company Number: BR-BAYER-2012-055737

PATIENT
  Age: 60 Year
  Sex: Female
  Weight: 59 kg

DRUGS (2)
  1. SORAFENIB (RAF KINASE INHIBITOR) [Suspect]
     Dosage: 200 MG, BID
     Dates: start: 20120516
  2. SORAFENIB (RAF KINASE INHIBITOR) [Suspect]
     Indication: HEPATIC NEOPLASM MALIGNANT
     Dosage: 400 MG, BID
     Route: 048
     Dates: start: 20120101, end: 20120401

REACTIONS (17)
  - HYPOAESTHESIA [None]
  - MALAISE [None]
  - NAUSEA [None]
  - BALANCE DISORDER [None]
  - ERYTHEMA [None]
  - DEPRESSED MOOD [None]
  - HEPATIC PAIN [None]
  - RASH MACULAR [None]
  - WEIGHT DECREASED [None]
  - ANAEMIA [None]
  - GAIT DISTURBANCE [None]
  - ABDOMINAL PAIN UPPER [None]
  - WOUND [None]
  - SKIN WARM [None]
  - MACULE [None]
  - MASS [None]
  - DEPRESSION [None]
